FAERS Safety Report 8239854-X (Version None)
Quarter: 2012Q1

REPORT INFORMATION
  Report Type: 
  Country: None (occurrence: None)
  Receive Date: 20120328
  Receipt Date: 20120322
  Transmission Date: 20120608
  Serious: No
  Sender: FDA-Public Use
  Company Number: PHEH2012US006538

PATIENT
  Sex: Male

DRUGS (7)
  1. HYDROCHLOROTHIAZIDE [Concomitant]
  2. ASPIRIN [Concomitant]
  3. CRESTOR [Concomitant]
  4. JANUMET [Concomitant]
  5. GLIPIZIDE [Concomitant]
  6. TASIGNA [Suspect]
     Indication: CHRONIC MYELOID LEUKAEMIA
     Dosage: 300 MG, BID
     Route: 048
     Dates: start: 20120222
  7. LISINOPRIL [Concomitant]

REACTIONS (3)
  - CARDIAC MURMUR [None]
  - ARRHYTHMIA [None]
  - TACHYCARDIA [None]
